FAERS Safety Report 7079283-8 (Version None)
Quarter: 2010Q4

REPORT INFORMATION
  Report Type: 
  Country: None (occurrence: None)
  Receive Date: 20101102
  Receipt Date: 20101029
  Transmission Date: 20110411
  Serious: Yes (Hospitalization)
  Sender: FDA-Public Use
  Company Number: US-WYE-H18463610

PATIENT
  Age: 68 Year
  Sex: Female

DRUGS (1)
  1. PREMARIN [Suspect]
     Dosage: UNKNOWN
     Route: 067
     Dates: end: 20100901

REACTIONS (3)
  - BREAST MASS [None]
  - DEMENTIA [None]
  - OVARIAN CANCER [None]
